FAERS Safety Report 12659690 (Version 5)
Quarter: 2020Q3

REPORT INFORMATION
  Report Type: Report from Study
  Country: US (occurrence: US)
  Receive Date: 20160817
  Receipt Date: 20200804
  Transmission Date: 20201102
  Serious: Yes (Hospitalization, Other)
  Sender: FDA-Public Use
  Company Number: PHHY2016US111004

PATIENT
  Age: 54 Year
  Sex: Female
  Weight: 72 kg

DRUGS (1)
  1. GILENYA [Suspect]
     Active Substance: FINGOLIMOD HYDROCHLORIDE
     Indication: MULTIPLE SCLEROSIS
     Dosage: 0.5 MG, QD
     Route: 048
     Dates: start: 20150429, end: 20200226

REACTIONS (9)
  - Syncope [Recovered/Resolved]
  - Headache [Unknown]
  - Nausea [Unknown]
  - Feeling abnormal [Unknown]
  - Lymphocyte count decreased [Recovered/Resolved]
  - Electrocardiogram T wave abnormal [Recovered/Resolved]
  - Blood pressure increased [Unknown]
  - Haemolytic anaemia [Unknown]
  - Fall [Unknown]

NARRATIVE: CASE EVENT DATE: 20160404
